FAERS Safety Report 5845835-3 (Version None)
Quarter: 2008Q3

REPORT INFORMATION
  Report Type: 
  Country: None (occurrence: None)
  Receive Date: 20080814
  Receipt Date: 20080806
  Transmission Date: 20090109
  Serious: Yes (Hospitalization, Other)
  Sender: FDA-Public Use
  Company Number: US-GENENTECH-265667

PATIENT
  Sex: Female
  Weight: 71.655 kg

DRUGS (6)
  1. BEVACIZUMAB [Suspect]
     Indication: NON-SMALL CELL LUNG CANCER
     Dosage: 15 MG/KG, Q3W
     Route: 042
     Dates: start: 20051027
  2. PEMETREXED [Suspect]
     Indication: NON-SMALL CELL LUNG CANCER
     Dosage: 500 MG/M2, Q3W
     Route: 042
     Dates: start: 20051027
  3. CALCIUM SUPPLEMENT [Concomitant]
     Indication: DRUG USE FOR UNKNOWN INDICATION
     Dosage: 1 UNK, QD
     Route: 048
  4. DIOVAN HCT [Concomitant]
     Indication: HYPERTENSION
     Dosage: 12.5 MG, QD
     Route: 048
  5. LEVOXYL [Concomitant]
     Indication: HYPERTHYROIDISM
     Dosage: 88 A?G, UNK
     Route: 048
  6. DETROL LA [Concomitant]
     Indication: URINARY INCONTINENCE
     Dosage: 4 MG, QD
     Route: 048

REACTIONS (3)
  - CELLULITIS [None]
  - NEUTROPENIA [None]
  - OSTEOMYELITIS [None]
